FAERS Safety Report 10508815 (Version 1)
Quarter: 2014Q4

REPORT INFORMATION
  Report Type: Spontaneous
  Country: US (occurrence: US)
  Receive Date: 20141009
  Receipt Date: 20141009
  Transmission Date: 20150528
  Serious: Yes (Other)
  Sender: FDA-Public Use
  Company Number: US-GLAXOSMITHKLINE-US2014GSK001327

PATIENT
  Sex: Female

DRUGS (4)
  1. CHEMOTHERAPY [Concomitant]
     Active Substance: UNSPECIFIED INGREDIENT
  2. ADVAIR HFA [Suspect]
     Active Substance: FLUTICASONE PROPIONATE\SALMETEROL XINAFOATE
     Dosage: 1 PUFF(S), BID
  3. RADIATION [Concomitant]
     Active Substance: RADIATION THERAPY
  4. ADVAIR HFA [Suspect]
     Active Substance: FLUTICASONE PROPIONATE\SALMETEROL XINAFOATE
     Dosage: 4 PUFF(S), QD

REACTIONS (5)
  - Drug administration error [Unknown]
  - Breast operation [Unknown]
  - Dyspnoea [Unknown]
  - Drug ineffective [Unknown]
  - Breast cancer [Unknown]

NARRATIVE: CASE EVENT DATE: 2010
